FAERS Safety Report 5512465-2 (Version None)
Quarter: 2007Q4

REPORT INFORMATION
  Report Type: 
  Country: None (occurrence: None)
  Receive Date: 20071112
  Receipt Date: 20070411
  Transmission Date: 20080405
  Serious: Yes (Disabling)
  Sender: FDA-Public Use
  Company Number: A0641914A

PATIENT
  Age: 83 Year
  Sex: Male

DRUGS (9)
  1. AVANDAMET [Suspect]
     Indication: DRUG USE FOR UNKNOWN INDICATION
     Dosage: 1TAB TWICE PER DAY
     Route: 048
  2. NITROSTAT [Concomitant]
     Indication: CORONARY ARTERY DISEASE
     Route: 060
  3. LOPID [Concomitant]
     Dosage: 600MG TWICE PER DAY
     Route: 048
  4. LIPITOR [Concomitant]
     Dosage: 20MG PER DAY
     Route: 048
  5. ASPIRIN [Concomitant]
     Indication: CORONARY ARTERY DISEASE
     Dosage: 81MG PER DAY
     Route: 048
  6. VITAMIN [Concomitant]
     Indication: SUPPLEMENTATION THERAPY
  7. METOPROLOL TARTRATE [Concomitant]
     Indication: HYPERTENSION
     Dosage: 50MG TWICE PER DAY
     Route: 048
  8. ARTIFICIAL TEARS [Concomitant]
  9. GLUCOTROL [Concomitant]
     Dosage: 5MG PER DAY
     Route: 048

REACTIONS (3)
  - EYE PAIN [None]
  - MACULAR OEDEMA [None]
  - VISION BLURRED [None]
